FAERS Safety Report 7587094-X (Version None)
Quarter: 2011Q3

REPORT INFORMATION
  Report Type: 
  Country: None (occurrence: None)
  Receive Date: 20110701
  Receipt Date: 20110621
  Transmission Date: 20111222
  Serious: Yes (Hospitalization)
  Sender: FDA-Public Use
  Company Number: US-BAYER-2011-043968

PATIENT
  Age: 20 Year
  Sex: Female
  Weight: 79.365 kg

DRUGS (4)
  1. YAZ [Suspect]
     Indication: PREMENSTRUAL SYNDROME
  2. VITAMIN TAB [Concomitant]
  3. YAZ [Suspect]
     Indication: ORAL CONTRACEPTION
     Dosage: UNK
     Dates: start: 20070601, end: 20091201
  4. YAZ [Suspect]
     Indication: MENSTRUATION IRREGULAR

REACTIONS (8)
  - JAUNDICE [None]
  - ABDOMINAL PAIN [None]
  - CHOLELITHIASIS [None]
  - ABDOMINAL PAIN UPPER [None]
  - NAUSEA [None]
  - CHROMATURIA [None]
  - VOMITING [None]
  - BILE DUCT STONE [None]
